FAERS Safety Report 12495709 (Version 8)
Quarter: 2018Q4

REPORT INFORMATION
  Report Type: Spontaneous
  Country: US (occurrence: US)
  Receive Date: 20160624
  Receipt Date: 20181216
  Transmission Date: 20190204
  Serious: Yes (Hospitalization)
  Sender: FDA-Public Use
  Company Number: US-BIOGEN-2011BI047849

PATIENT
  Age: 66 Year
  Sex: Female

DRUGS (6)
  1. TYSABRI [Suspect]
     Active Substance: NATALIZUMAB
     Route: 065
     Dates: start: 20080523, end: 20180525
  2. TYSABRI [Suspect]
     Active Substance: NATALIZUMAB
     Route: 065
     Dates: start: 201208
  3. RECLAST [Concomitant]
     Active Substance: ZOLEDRONIC ACID
     Indication: OSTEOPOROSIS
     Route: 065
  4. TYSABRI [Suspect]
     Active Substance: NATALIZUMAB
     Indication: MULTIPLE SCLEROSIS
     Route: 042
     Dates: start: 20080523, end: 20111025
  5. AMPYRA [Concomitant]
     Active Substance: DALFAMPRIDINE
     Indication: MULTIPLE SCLEROSIS
     Route: 065
     Dates: start: 20080523
  6. TYSABRI [Suspect]
     Active Substance: NATALIZUMAB
     Route: 042

REACTIONS (30)
  - Central nervous system lesion [Not Recovered/Not Resolved]
  - Hypoacusis [Unknown]
  - Blood disorder [Not Recovered/Not Resolved]
  - Spinal column stenosis [Recovered/Resolved]
  - Blood pressure increased [Unknown]
  - Asthenia [Unknown]
  - Spinal osteoarthritis [Recovered/Resolved]
  - Leukopenia [Not Recovered/Not Resolved]
  - Inflammation [Unknown]
  - Cataract [Unknown]
  - White blood cell count decreased [Unknown]
  - Multiple sclerosis relapse [Recovered/Resolved]
  - Spinal deformity [Recovered/Resolved]
  - Osteoporosis [Recovered/Resolved]
  - Foot fracture [Recovered/Resolved]
  - Malaise [Unknown]
  - Peripheral swelling [Unknown]
  - Multiple sclerosis [Recovered/Resolved]
  - Drug specific antibody present [Unknown]
  - Dizziness [Unknown]
  - Muscle spasticity [Recovered/Resolved]
  - Oedema [Unknown]
  - Arthritis [Recovered/Resolved]
  - Decreased immune responsiveness [Not Recovered/Not Resolved]
  - Platelet count decreased [Not Recovered/Not Resolved]
  - Rash [Unknown]
  - Monoparesis [Not Recovered/Not Resolved]
  - Weight decreased [Recovered/Resolved]
  - Optic neuritis [Unknown]
  - Dysgraphia [Unknown]

NARRATIVE: CASE EVENT DATE: 2011
